FAERS Safety Report 4296497-0 (Version None)
Quarter: 2004Q1

REPORT INFORMATION
  Report Type: 
  Country: None (occurrence: None)
  Receive Date: 20040126
  Receipt Date: 20030822
  Transmission Date: 20041129
  Serious: No
  Sender: FDA-Public Use
  Company Number: USA030845210

PATIENT
  Age: 15 Year
  Sex: Male

DRUGS (1)
  1. STRATTERA [Suspect]
     Dates: start: 20030722

REACTIONS (1)
  - ABNORMAL DREAMS [None]
